FAERS Safety Report 4522872-2 (Version None)
Quarter: 2004Q4

REPORT INFORMATION
  Report Type: 
  Country: None (occurrence: None)
  Receive Date: 20041207
  Receipt Date: 20041027
  Transmission Date: 20050328
  Serious: Yes (Death, Hospitalization)
  Sender: FDA-Public Use
  Company Number: F01200403407

PATIENT
  Age: 76 Year
  Sex: Male

DRUGS (1)
  1. ELIGARD [Suspect]
     Indication: PROSTATE CANCER
     Dosage: 22.5 MG, SC
     Route: 058
     Dates: start: 20040609

REACTIONS (15)
  - ABSCESS [None]
  - ANAEMIA [None]
  - ASCITES [None]
  - COAGULOPATHY [None]
  - COMA [None]
  - HAEMORRHAGIC DIATHESIS [None]
  - HEPATIC FAILURE [None]
  - HEPATOTOXICITY [None]
  - INFARCTION [None]
  - NERVOUS SYSTEM DISORDER [None]
  - PERITONITIS [None]
  - POST PROCEDURAL COMPLICATION [None]
  - POST PROCEDURAL HAEMORRHAGE [None]
  - RECTAL CANCER [None]
  - RESPIRATORY FAILURE [None]
